FAERS Safety Report 5654787-0 (Version None)
Quarter: 2008Q1

REPORT INFORMATION
  Report Type: 
  Country: None (occurrence: None)
  Receive Date: 20080307
  Receipt Date: 20070712
  Transmission Date: 20080703
  Serious: No
  Sender: FDA-Public Use
  Company Number: A0663707A

PATIENT
  Age: 88 Year
  Sex: Female

DRUGS (9)
  1. REQUIP [Suspect]
     Dosage: 25MG AT NIGHT
     Route: 048
     Dates: start: 20070601
  2. SYNTHROID [Concomitant]
  3. PROTONIX [Concomitant]
  4. ENABLEX [Concomitant]
  5. FOLIC ACID [Concomitant]
  6. ZOCOR [Concomitant]
  7. AMBIEN [Concomitant]
  8. ULTRAM [Concomitant]
  9. ENBREL [Concomitant]

REACTIONS (3)
  - DIZZINESS [None]
  - FATIGUE [None]
  - SOMNOLENCE [None]
